FAERS Safety Report 4517300-7 (Version None)
Quarter: 2004Q4

REPORT INFORMATION
  Report Type: 
  Country: None (occurrence: None)
  Receive Date: 20041005
  Receipt Date: 20040622
  Transmission Date: 20050328
  Serious: No
  Sender: FDA-Public Use
  Company Number: SU-2004-002475

PATIENT
  Age: 59 Year
  Sex: Male
  Weight: 89.3586 kg

DRUGS (4)
  1. BENICAR HCT [Suspect]
     Indication: HYPERTENSION
     Dosage: 20.125 MG QD PO
     Route: 048
     Dates: start: 20030724
  2. BEXTRA [Concomitant]
  3. ALLEGRA-D [Concomitant]
  4. VIAGRA [Concomitant]

REACTIONS (1)
  - GYNAECOMASTIA [None]
